FAERS Safety Report 21400977 (Version 6)
Quarter: 2023Q1

REPORT INFORMATION
  Report Type: Spontaneous
  Country: JP (occurrence: JP)
  Receive Date: 20221003
  Receipt Date: 20230228
  Transmission Date: 20230417
  Serious: Yes (Hospitalization, Other)
  Sender: FDA-Public Use
  Company Number: JP-NBI-J202213474BIPI

PATIENT
  Age: 84 Year
  Sex: Female
  Weight: 41 kg

DRUGS (3)
  1. OFEV [Suspect]
     Active Substance: NINTEDANIB
     Indication: Idiopathic pulmonary fibrosis
     Route: 048
     Dates: start: 20220721, end: 20221010
  2. OFEV [Suspect]
     Active Substance: NINTEDANIB
     Route: 048
     Dates: start: 20221020, end: 20221224
  3. OFEV [Suspect]
     Active Substance: NINTEDANIB
     Route: 048
     Dates: start: 20221226

REACTIONS (11)
  - Stress [Not Recovered/Not Resolved]
  - Dementia [Not Recovered/Not Resolved]
  - Diarrhoea [Recovered/Resolved]
  - Headache [Recovered/Resolved]
  - Taste disorder [Not Recovered/Not Resolved]
  - Therapy cessation [Unknown]
  - Proctalgia [Not Recovered/Not Resolved]
  - Sputum retention [Not Recovered/Not Resolved]
  - Weight decreased [Not Recovered/Not Resolved]
  - Dyspnoea [Not Recovered/Not Resolved]
  - KL-6 increased [Not Recovered/Not Resolved]

NARRATIVE: CASE EVENT DATE: 20220723
